FAERS Safety Report 5367011-3 (Version None)
Quarter: 2007Q2

REPORT INFORMATION
  Report Type: 
  Country: None (occurrence: None)
  Receive Date: 20070622
  Receipt Date: 20070618
  Transmission Date: 20071010
  Serious: Yes (Other)
  Sender: FDA-Public Use
  Company Number: US-AVENTIS-200714293US

PATIENT
  Sex: Female
  Weight: 46.81 kg

DRUGS (10)
  1. LANTUS [Suspect]
     Dates: start: 20070401, end: 20070101
  2. LANTUS [Suspect]
     Dates: start: 20070101, end: 20070101
  3. LANTUS [Suspect]
     Dosage: DOSE: UNK
     Dates: start: 20070101, end: 20070101
  4. LANTUS [Suspect]
     Dates: start: 20060501, end: 20060601
  5. LANTUS [Suspect]
     Dates: start: 20060601
  6. OPTICLIK (INSULIN INJECTION PEN) [Suspect]
     Dates: start: 20070401, end: 20070101
  7. NOVOLOG [Concomitant]
     Dosage: DOSE: UNK
  8. NOVOLOG [Concomitant]
     Dosage: DOSE: SLIDING SCALE
     Dates: start: 20070601
  9. VYTORIN [Concomitant]
     Dosage: DOSE: UNK
  10. ASPIRIN [Concomitant]
     Dosage: DOSE: ^LOW DOSE^ NOS

REACTIONS (3)
  - HYPERGLYCAEMIA [None]
  - HYPOGLYCAEMIA [None]
  - LOSS OF CONSCIOUSNESS [None]
